FAERS Safety Report 10079736 (Version 1)
Quarter: 2014Q2

REPORT INFORMATION
  Report Type: Spontaneous
  Country: ES (occurrence: ES)
  Receive Date: 20140415
  Receipt Date: 20140415
  Transmission Date: 20141212
  Serious: Yes (Hospitalization)
  Sender: FDA-Public Use
  Company Number: ES-VERTEX PHARMACEUTICALS INC-2014-001940

PATIENT
  Age: 68 Year
  Sex: Male

DRUGS (3)
  1. INCIVO [Suspect]
     Indication: HEPATITIS C
     Dosage: 1125 MG, QD
     Route: 048
     Dates: start: 20130509, end: 20130724
  2. RIBAVIRIN [Concomitant]
     Indication: HEPATITIS C
  3. PEG-INTERFERON [Concomitant]
     Indication: HEPATITIS C

REACTIONS (2)
  - Subcutaneous abscess [Recovered/Resolved]
  - Eczema [Recovered/Resolved]
